FAERS Safety Report 20156047 (Version 1)
Quarter: 2021Q4

REPORT INFORMATION
  Report Type: Spontaneous
  Country: US (occurrence: US)
  Receive Date: 20211207
  Receipt Date: 20211207
  Transmission Date: 20220303
  Serious: Yes (Other)
  Sender: FDA-Public Use
  Company Number: US-AMNEAL PHARMACEUTICALS-2021-AMRX-04794

PATIENT
  Age: 56 Year
  Sex: Male

DRUGS (1)
  1. METHITEST [Suspect]
     Active Substance: METHYLTESTOSTERONE
     Indication: Hypogonadism
     Dosage: UNK
     Route: 065

REACTIONS (3)
  - Cholangiocarcinoma [Unknown]
  - Sepsis [Unknown]
  - Renal failure [Unknown]
